FAERS Safety Report 6409455-4 (Version None)
Quarter: 2009Q4

REPORT INFORMATION
  Report Type: 
  Country: None (occurrence: None)
  Receive Date: 20091019
  Receipt Date: 20091012
  Transmission Date: 20100525
  Serious: Yes (Other)
  Sender: FDA-Public Use
  Company Number: CERZ-1000923

PATIENT
  Age: 73 Year
  Sex: Female

DRUGS (18)
  1. CEREZYME             (IMIGLUCERASE) [Suspect]
     Indication: GAUCHER'S DISEASE
     Dosage: 2600 U, Q2W, INTRAVENOUS; 5400 U, Q2W, INTRAVENOUS
     Route: 042
     Dates: start: 20001109
  2. MELOXICAM [Concomitant]
  3. RAMIPRIL [Concomitant]
  4. HYDROCHLOROTHIAZIDE [Concomitant]
  5. PRAVASTATIN SODIUM [Concomitant]
  6. VAGIFEM [Concomitant]
  7. PREVACID [Concomitant]
  8. REMERON [Concomitant]
  9. CLONAZEPAM [Concomitant]
  10. LOMOTIL [Concomitant]
  11. FOSAMAX PLUS D [Concomitant]
  12. COQ10 (UBIDECARENONE) [Concomitant]
  13. ACETYLCYSTEINE [Concomitant]
  14. CALCIUM (ASCORBIC ACID) [Concomitant]
  15. FISH OIL (FISH OIL) [Concomitant]
  16. CRANBERRY (VACCINIUM MACROCARPON) [Concomitant]
  17. THERAGRAN (VITAMINS NOS) [Concomitant]
  18. COSAMIN DS (ASCORBIC ACID, CHONDROITIN SULFATE SODIUM, GLUCOSAMINE HYD [Concomitant]

REACTIONS (2)
  - BONE PAIN [None]
  - INAPPROPRIATE SCHEDULE OF DRUG ADMINISTRATION [None]
